FAERS Safety Report 23256973 (Version 1)
Quarter: 2023Q4

REPORT INFORMATION
  Report Type: Spontaneous
  Country: US (occurrence: US)
  Receive Date: 20231204
  Receipt Date: 20231204
  Transmission Date: 20240110
  Serious: No
  Sender: FDA-Public Use
  Company Number: US-BRISTOL-MYERS SQUIBB COMPANY-2023-174227

PATIENT
  Age: 71 Year
  Sex: Female

DRUGS (1)
  1. SPRYCEL [Suspect]
     Active Substance: DASATINIB
     Indication: Product used for unknown indication
     Route: 048
     Dates: start: 202210

REACTIONS (4)
  - Swollen tongue [Recovered/Resolved]
  - Sinusitis [Unknown]
  - Glossitis [Recovered/Resolved]
  - Tooth disorder [Unknown]

NARRATIVE: CASE EVENT DATE: 20231101
